FAERS Safety Report 9479054 (Version 2)
Quarter: 2013Q3

REPORT INFORMATION
  Report Type: Report from Study
  Country: CZ (occurrence: CZ)
  Receive Date: 20130827
  Receipt Date: 20130827
  Transmission Date: 20140515
  Serious: Yes (Hospitalization, Other)
  Sender: FDA-Public Use
  Company Number: CZ-BRISTOL-MYERS SQUIBB COMPANY-14878045

PATIENT
  Age: 73 Year
  Sex: Female

DRUGS (5)
  1. APIXABAN [Suspect]
     Indication: EMBOLISM
     Dosage: 1 DF:2 CAPS
     Route: 048
     Dates: start: 20090922, end: 20091120
  2. PLACEBO [Suspect]
     Indication: EMBOLISM
     Dates: start: 200909
  3. AMLODIPINE BESYLATE [Concomitant]
     Dates: start: 2007
  4. PERINDOPRILUM [Concomitant]
     Dates: start: 2007
  5. PRESTARIUM [Concomitant]
     Dates: start: 2007

REACTIONS (1)
  - Neoplasm malignant [Recovered/Resolved with Sequelae]
